FAERS Safety Report 6556842-X (Version None)
Quarter: 2010Q1

REPORT INFORMATION
  Report Type: 
  Country: None (occurrence: None)
  Receive Date: 20100128
  Receipt Date: 20100119
  Transmission Date: 20100710
  Serious: Yes (Life-Threatening, Hospitalization, Other)
  Sender: FDA-Public Use
  Company Number: PHHY2010FR03814

PATIENT
  Sex: Male

DRUGS (12)
  1. NISIS [Suspect]
     Indication: CARDIAC FAILURE CONGESTIVE
     Dosage: 80 MG PER DAY
     Route: 048
     Dates: start: 20080401, end: 20090809
  2. ALDACTONE [Suspect]
     Indication: CARDIAC FAILURE CONGESTIVE
     Dosage: UNK
     Dates: start: 20080401, end: 20090809
  3. SOLUPRED [Concomitant]
     Dosage: UNK
     Dates: start: 20090801
  4. SOLUPRED [Concomitant]
     Dosage: 20 MG
     Dates: start: 20090809
  5. CARDENSIEL [Concomitant]
     Indication: CARDIAC FAILURE CONGESTIVE
     Dosage: UNK
     Route: 048
     Dates: start: 20080401, end: 20090401
  6. ESOMEPRAZOLE MAGNESIUM [Concomitant]
     Route: 048
  7. XANAX [Concomitant]
     Route: 048
  8. CORDARONE [Concomitant]
     Indication: ATRIAL FIBRILLATION
     Route: 048
  9. BUDESONIDE [Concomitant]
     Indication: CHRONIC RESPIRATORY FAILURE
     Dosage: 400 UG, BID
  10. FORMOTEROL FUMARATE [Concomitant]
     Indication: CHRONIC RESPIRATORY FAILURE
     Dosage: 2 IN 2 DAYS
  11. SPIRIVA [Concomitant]
     Indication: CHRONIC RESPIRATORY FAILURE
  12. OXYGEN THERAPY [Concomitant]
     Indication: CHRONIC RESPIRATORY FAILURE

REACTIONS (7)
  - BLOOD CREATININE INCREASED [None]
  - CARDIAC FAILURE [None]
  - HYPERKALAEMIA [None]
  - LOSS OF CONSCIOUSNESS [None]
  - MALAISE [None]
  - RENAL FAILURE ACUTE [None]
  - WHITE BLOOD CELL COUNT INCREASED [None]
